FAERS Safety Report 19367730 (Version 1)
Quarter: 2021Q2

REPORT INFORMATION
  Report Type: Spontaneous
  Country: US (occurrence: US)
  Receive Date: 20210602
  Receipt Date: 20210602
  Transmission Date: 20210717
  Serious: No
  Sender: FDA-Public Use
  Company Number: US-ROCHE-2616765

PATIENT
  Age: 74 Year
  Sex: Female
  Weight: 83.99 kg

DRUGS (13)
  1. CLARITIN [Concomitant]
     Active Substance: LORATADINE
     Indication: HYPERSENSITIVITY
     Dosage: ONGOING: YES
     Route: 048
  2. VITAMIN D3 [Concomitant]
     Active Substance: CHOLECALCIFEROL
     Dosage: ONGOING: YES
     Route: 048
  3. VITAMIN B12 [Concomitant]
     Active Substance: CYANOCOBALAMIN
     Dosage: ONGOING: YES
  4. BETASERON [Concomitant]
     Active Substance: INTERFERON BETA-1B
  5. OCRELIZUMAB. [Suspect]
     Active Substance: OCRELIZUMAB
     Indication: RELAPSING-REMITTING MULTIPLE SCLEROSIS
     Dosage: ONGOING: YES
     Route: 065
     Dates: start: 201909
  6. OMEPRAZOLE. [Concomitant]
     Active Substance: OMEPRAZOLE
     Dosage: ONGOING: YES
     Route: 048
  7. MONUROL [Concomitant]
     Active Substance: FOSFOMYCIN TROMETHAMINE
     Indication: URINARY TRACT INFECTION
     Dosage: ONGOING: YES
     Route: 048
  8. MOMETASONE [Concomitant]
     Active Substance: MOMETASONE
     Dosage: SPRAY ONCE DAILY ;ONGOING: YES
     Route: 061
  9. SYNTHROID [Concomitant]
     Active Substance: LEVOTHYROXINE SODIUM
     Dosage: ONGOING: YES
     Route: 048
  10. FENOFIBRATE. [Concomitant]
     Active Substance: FENOFIBRATE
     Indication: BLOOD CHOLESTEROL INCREASED
     Dosage: ONGOING: YES
     Route: 048
  11. AVONEX [Concomitant]
     Active Substance: INTERFERON BETA-1A
  12. LETROLE [Concomitant]
     Active Substance: LETROZOLE
     Indication: BREAST CANCER
     Dosage: ONGOING: YES
     Route: 048
  13. REBIF [Concomitant]
     Active Substance: INTERFERON BETA-1A

REACTIONS (1)
  - Chills [Recovered/Resolved]

NARRATIVE: CASE EVENT DATE: 201910
